FAERS Safety Report 16884771 (Version 1)
Quarter: 2019Q4

REPORT INFORMATION
  Report Type: Spontaneous
  Country: US (occurrence: US)
  Receive Date: 20190808
  Receipt Date: 20190808
  Transmission Date: 20200122
  Serious: Yes (Hospitalization)
  Sender: FDA-Public Use
  Company Number: None

PATIENT
  Age: 72 Year
  Sex: Male
  Weight: 104.1 kg

DRUGS (2)
  1. DAUNORUBICIN [Suspect]
     Active Substance: DAUNORUBICIN
     Dates: end: 20190711
  2. CYTARABINE. [Suspect]
     Active Substance: CYTARABINE
     Dates: end: 20190715

REACTIONS (2)
  - Body temperature increased [None]
  - Neutrophil count decreased [None]

NARRATIVE: CASE EVENT DATE: 20190730
